FAERS Safety Report 17397309 (Version 2)
Quarter: 2020Q1

REPORT INFORMATION
  Report Type: Spontaneous
  Country: US (occurrence: US)
  Receive Date: 20200210
  Receipt Date: 20200303
  Transmission Date: 20200409
  Serious: No
  Sender: FDA-Public Use
  Company Number: US-JNJFOC-20200200776

PATIENT
  Sex: Male
  Weight: 108.96 kg

DRUGS (4)
  1. FUROSEMIDE. [Concomitant]
     Active Substance: FUROSEMIDE
     Route: 065
  2. METFORMIN [Concomitant]
     Active Substance: METFORMIN HYDROCHLORIDE
     Route: 065
  3. XARELTO [Suspect]
     Active Substance: RIVAROXABAN
     Indication: MYOCARDIAL INFARCTION
     Route: 048
     Dates: start: 2015
  4. CARTIA                             /00002701/ [Concomitant]
     Active Substance: ASPIRIN
     Route: 065

REACTIONS (4)
  - Product shape issue [Unknown]
  - Product use in unapproved indication [Unknown]
  - Foreign body in respiratory tract [Unknown]
  - Off label use [Unknown]

NARRATIVE: CASE EVENT DATE: 2015
